FAERS Safety Report 23830376 (Version 2)
Quarter: 2024Q2

REPORT INFORMATION
  Report Type: Spontaneous
  Country: CA (occurrence: CA)
  Receive Date: 20240508
  Receipt Date: 20240624
  Transmission Date: 20240716
  Serious: Yes (Other)
  Sender: FDA-Public Use
  Company Number: None

PATIENT
  Age: 52 Year
  Sex: Male

DRUGS (27)
  1. CAPECITABINE [Suspect]
     Active Substance: CAPECITABINE
     Indication: Pancreatic carcinoma metastatic
  2. DOCETAXEL [Suspect]
     Active Substance: DOCETAXEL\DOCETAXEL ANHYDROUS
     Indication: Product used for unknown indication
  3. GEMCITABINE [Suspect]
     Active Substance: GEMCITABINE
     Indication: Pancreatic carcinoma metastatic
  4. OXALIPLATIN [Suspect]
     Active Substance: OXALIPLATIN
     Indication: Pancreatic carcinoma metastatic
  5. PEMETREXED [Suspect]
     Active Substance: PEMETREXED
     Indication: Pancreatic carcinoma metastatic
     Dosage: POWDER FOR SOLUTION
  6. PEMBROLIZUMAB [Suspect]
     Active Substance: PEMBROLIZUMAB
     Indication: Pancreatic carcinoma metastatic
  7. LORLATINIB [Suspect]
     Active Substance: LORLATINIB
     Indication: Pancreatic carcinoma metastatic
  8. TRASTUZUMAB [Suspect]
     Active Substance: TRASTUZUMAB
     Indication: Pancreatic carcinoma metastatic
  9. BRIGATINIB [Concomitant]
     Active Substance: BRIGATINIB
  10. BEVACIZUMAB [Concomitant]
     Active Substance: BEVACIZUMAB
     Route: 042
  11. CISPLATIN [Concomitant]
     Active Substance: CISPLATIN
     Route: 042
  12. DEMCIZUMAB [Concomitant]
     Active Substance: DEMCIZUMAB
  13. AMILOMER [Concomitant]
     Active Substance: AMILOMER
  14. TRASTUZUMAB DERUXTECAN [Concomitant]
     Active Substance: TRASTUZUMAB DERUXTECAN
     Dosage: POWDER FOR SOLUTION INTRAVENOUS
  15. ENTRECTINIB [Concomitant]
     Active Substance: ENTRECTINIB
  16. FLUOROURACIL [Concomitant]
     Active Substance: FLUOROURACIL
  17. LEUCOVORIN [Concomitant]
     Active Substance: LEUCOVORIN\LEUCOVORIN CALCIUM
  18. IRINOTECAN HYDROCHLORIDE [Concomitant]
     Active Substance: IRINOTECAN HYDROCHLORIDE
     Dosage: SOLUTION INTRAVENOUS
  19. LIPIODOL [Concomitant]
     Active Substance: ETHIODIZED OIL
  20. MITOMYCIN [Concomitant]
     Active Substance: MITOMYCIN
     Dosage: POWDER FOR SOLUTION INTRAVESICULAR
  21. OSIMERTINIB [Concomitant]
     Active Substance: OSIMERTINIB
  22. PACLITAXEL [Concomitant]
     Active Substance: PACLITAXEL
     Dosage: LIQUID INTRAVENOUS
  23. PERTUZUMAB [Concomitant]
     Active Substance: PERTUZUMAB
  24. AMILOMER [Concomitant]
     Active Substance: AMILOMER
  25. ETHIODIZED OIL [Concomitant]
     Active Substance: ETHIODIZED OIL
  26. LORLATINIB [Concomitant]
     Active Substance: LORLATINIB
     Indication: Metastases to liver
     Route: 065
  27. CAPECITABINE [Suspect]
     Active Substance: CAPECITABINE
     Indication: Pancreatic carcinoma metastatic

REACTIONS (5)
  - Pancytopenia [Unknown]
  - Disease progression [Unknown]
  - Metastases to central nervous system [Unknown]
  - Metastases to liver [Unknown]
  - Off label use [Unknown]
